FAERS Safety Report 20381177 (Version 3)
Quarter: 2022Q1

REPORT INFORMATION
  Report Type: Spontaneous
  Country: JP (occurrence: JP)
  Receive Date: 20220127
  Receipt Date: 20220224
  Transmission Date: 20220423
  Serious: Yes (Hospitalization, Other)
  Sender: FDA-Public Use
  Company Number: JP-Accord-251674

PATIENT
  Age: 64 Year
  Sex: Female
  Weight: 40.4 kg

DRUGS (3)
  1. OXALIPLATIN [Suspect]
     Active Substance: OXALIPLATIN
     Indication: Metastases to peritoneum
     Dosage: 85 MG / M2 : 2 HOURS INFUSION
     Route: 042
  2. FLUOROURACIL [Suspect]
     Active Substance: FLUOROURACIL
     Indication: Metastases to peritoneum
     Dosage: (5-FU), 400 MG / M2: BOLUS ADMINISTRATION, 5 -FU 2400MG / M2 :46 HOURS CONTINUOUS INFUSION
     Route: 040
  3. LEUCOVORIN [Suspect]
     Active Substance: LEUCOVORIN
     Indication: Metastases to peritoneum
     Dosage: 200 MG / M2

REACTIONS (1)
  - Hyperammonaemic encephalopathy [Recovered/Resolved]
